FAERS Safety Report 13882246 (Version 5)
Quarter: 2018Q3

REPORT INFORMATION
  Report Type: Report from Study
  Country: FR (occurrence: FR)
  Receive Date: 20170818
  Receipt Date: 20180711
  Transmission Date: 20181010
  Serious: Yes (Hospitalization)
  Sender: FDA-Public Use
  Company Number: FR-ROCHE-1977926

PATIENT
  Age: 73 Year
  Sex: Female
  Weight: 48 kg

DRUGS (3)
  1. OBINUTUZUMAB. [Suspect]
     Active Substance: OBINUTUZUMAB
     Indication: WALDENSTROM^S MACROGLOBULINAEMIA
     Dosage: LAST ADMINISTRATION OF OBINUTUZUMAB ACCORDING TO THE PROTOCOL (CYCLE 6)
     Route: 041
     Dates: start: 20170718, end: 20171214
  2. IDELALISIB [Suspect]
     Active Substance: IDELALISIB
     Indication: WALDENSTROM^S MACROGLOBULINAEMIA
     Dosage: TEMPORARILY INTERRUPTED
     Route: 048
     Dates: start: 20170718, end: 20170803
  3. IDELALISIB [Suspect]
     Active Substance: IDELALISIB
     Dosage: TEMPORARILY INTERRUPTED
     Route: 048
     Dates: start: 20171116, end: 20180306

REACTIONS (4)
  - Rhinorrhoea [Recovered/Resolved]
  - Clostridium difficile colitis [Recovered/Resolved]
  - Pyrexia [Recovered/Resolved]
  - Thrombocytopenia [Recovered/Resolved]

NARRATIVE: CASE EVENT DATE: 20170803
